FAERS Safety Report 17709392 (Version 1)
Quarter: 2020Q2

REPORT INFORMATION
  Report Type: Spontaneous
  Country: NL (occurrence: NL)
  Receive Date: 20200427
  Receipt Date: 20200427
  Transmission Date: 20200714
  Serious: Yes (Other)
  Sender: FDA-Public Use
  Company Number: NL-AUROBINDO-AUR-APL-2020-020387

PATIENT
  Age: 38 Year
  Sex: Female

DRUGS (2)
  1. CELECOXIB 200 MG CAPSULES, HARD [Suspect]
     Active Substance: CELECOXIB
     Indication: SPONDYLITIS
     Dosage: 200 MILLIGRAM, TWO TIMES A DAY (400 MG ONCE A DAY)
     Route: 048
     Dates: start: 20150106, end: 20150320
  2. ADALIMUMAB [Concomitant]
     Active Substance: ADALIMUMAB
     Indication: PRODUCT USED FOR UNKNOWN INDICATION
     Dosage: 40MG, 1X/2W (ONCE IN 2 WEEKS)
     Route: 058
     Dates: start: 20150213

REACTIONS (1)
  - Urticarial vasculitis [Unknown]

NARRATIVE: CASE EVENT DATE: 20150320
